FAERS Safety Report 11962334 (Version 1)
Quarter: 2016Q1

REPORT INFORMATION
  Report Type: Spontaneous
  Country: US (occurrence: US)
  Receive Date: 20160126
  Receipt Date: 20160126
  Transmission Date: 20160526
  Serious: No
  Sender: FDA-Public Use
  Company Number: US-DEXPHARM-20151179

PATIENT
  Age: 76 Year
  Sex: Female
  Weight: 65.76 kg

DRUGS (9)
  1. DILANTIN [Concomitant]
     Active Substance: PHENYTOIN
  2. NORVASC [Concomitant]
     Active Substance: AMLODIPINE BESYLATE
  3. TRAMADOL. [Concomitant]
     Active Substance: TRAMADOL
  4. OMEPRAZOLE DELAYED RELEASE [Suspect]
     Active Substance: OMEPRAZOLE
     Indication: GASTROOESOPHAGEAL REFLUX DISEASE
     Route: 048
     Dates: start: 20150505, end: 20150519
  5. CELEBREX [Concomitant]
     Active Substance: CELECOXIB
     Dates: start: 2000
  6. CRESTOR [Concomitant]
     Active Substance: ROSUVASTATIN CALCIUM
  7. TYLENOL [Concomitant]
     Active Substance: ACETAMINOPHEN
  8. ANASTROZOLE. [Concomitant]
     Active Substance: ANASTROZOLE
  9. ALENDRONATE [Concomitant]
     Active Substance: ALENDRONATE SODIUM

REACTIONS (4)
  - Abdominal distension [Recovering/Resolving]
  - Abdominal pain upper [Recovering/Resolving]
  - Dyspepsia [Recovering/Resolving]
  - Pre-existing disease [Recovering/Resolving]

NARRATIVE: CASE EVENT DATE: 20150520
